FAERS Safety Report 6441483-5 (Version None)
Quarter: 2009Q4

REPORT INFORMATION
  Report Type: 
  Country: None (occurrence: None)
  Receive Date: 20091116
  Receipt Date: 20091110
  Transmission Date: 20100525
  Serious: Yes (Hospitalization)
  Sender: FDA-Public Use
  Company Number: A0817023A

PATIENT
  Age: 38 Year
  Sex: Female

DRUGS (1)
  1. AVANDIA [Suspect]
     Dosage: 8MG PER DAY
     Route: 065
     Dates: start: 20050101, end: 20090308

REACTIONS (6)
  - BACK DISORDER [None]
  - EYE HAEMORRHAGE [None]
  - GASTRIC DISORDER [None]
  - MUSCLE DISORDER [None]
  - MUSCULOSKELETAL DISORDER [None]
  - VISUAL IMPAIRMENT [None]
